FAERS Safety Report 5022502-X (Version None)
Quarter: 2006Q2

REPORT INFORMATION
  Report Type: 
  Country: None (occurrence: None)
  Receive Date: 20060605
  Receipt Date: 20060522
  Transmission Date: 20061013
  Serious: Yes (Hospitalization)
  Sender: FDA-Public Use
  Company Number: 02100-JPN-06-0163

PATIENT
  Age: 73 Year
  Sex: Female

DRUGS (10)
  1. CILOSTAZOL [Suspect]
     Indication: MYOCARDIAL INFARCTION
     Dosage: 200 MG, ORAL
     Route: 048
     Dates: start: 20060318, end: 20060323
  2. CEFAZOLIN SODIUM [Suspect]
     Indication: CATHETERISATION CARDIAC
     Dosage: 1 G, IV DRIP
     Route: 041
     Dates: start: 20060313, end: 20060313
  3. CEFAZOLIN SODIUM [Suspect]
     Indication: CATHETERISATION CARDIAC
     Dosage: 1 G, IV DRIP
     Route: 041
     Dates: start: 20060315, end: 20060315
  4. IOPAMIDOL-300 [Suspect]
     Indication: PYREXIA
     Dosage: 47.25 G IV
     Route: 042
     Dates: start: 20060315, end: 20060315
  5. CIPROFLOXACIN HCL [Suspect]
     Indication: URINARY TRACT INFECTION
     Dosage: 2 G
     Dates: start: 20060325, end: 20060328
  6. NICORANDIL [Concomitant]
  7. FOLIC ACID [Concomitant]
  8. PHENOBARBITAL [Concomitant]
  9. ALBUMIN TANNATE [Concomitant]
  10. HEPARIN SODIUM [Concomitant]

REACTIONS (1)
  - GENERALISED ERYTHEMA [None]
